FAERS Safety Report 10981225 (Version 1)
Quarter: 2015Q2

REPORT INFORMATION
  Report Type: Spontaneous
  Country: TR (occurrence: TR)
  Receive Date: 20150402
  Receipt Date: 20150402
  Transmission Date: 20150821
  Serious: Yes (Other)
  Sender: FDA-Public Use
  Company Number: TR-ROXANE LABORATORIES, INC.-2015-BI-16843GD

PATIENT
  Sex: Female

DRUGS (3)
  1. AMANTADINE [Suspect]
     Active Substance: AMANTADINE
     Indication: PARKINSONISM
     Dosage: 200 MG
     Route: 065
  2. CLOZAPINE. [Suspect]
     Active Substance: CLOZAPINE
     Indication: PARKINSONISM
     Dosage: 50 MG
     Route: 065
  3. ROPINIROLE. [Suspect]
     Active Substance: ROPINIROLE
     Indication: PARKINSONISM
     Dosage: 0.7273 MG
     Route: 065

REACTIONS (4)
  - Dyskinesia [Unknown]
  - Posture abnormal [Unknown]
  - Bradykinesia [Unknown]
  - Abnormal behaviour [Unknown]
